FAERS Safety Report 25771327 (Version 1)
Quarter: 2025Q3

REPORT INFORMATION
  Report Type: Spontaneous
  Country: US (occurrence: US)
  Receive Date: 20250908
  Receipt Date: 20250908
  Transmission Date: 20251021
  Serious: No
  Sender: DOMPE FARMACEUTICI
  Company Number: US-FARMAPROD-202504-1206

PATIENT
  Sex: Female

DRUGS (15)
  1. OXERVATE [Suspect]
     Active Substance: CENEGERMIN-BKBJ
     Indication: Neurotrophic keratopathy
     Route: 047
     Dates: start: 20200915
  2. OXERVATE [Suspect]
     Active Substance: CENEGERMIN-BKBJ
     Route: 047
     Dates: start: 20250404
  3. TIMOLOL [Concomitant]
     Active Substance: TIMOLOL
  4. PREDNISONE [Concomitant]
     Active Substance: PREDNISONE
  5. DOXYCYCLINE HYCLATE [Concomitant]
     Active Substance: DOXYCYCLINE HYCLATE
  6. MOXIFLOXACIN [Concomitant]
     Active Substance: MOXIFLOXACIN
  7. IRBESARTAN [Concomitant]
     Active Substance: IRBESARTAN
  8. MIRTAZAPINE [Concomitant]
     Active Substance: MIRTAZAPINE
  9. LISINOPRIL [Concomitant]
     Active Substance: LISINOPRIL
  10. PENTOXIFYLLINE [Concomitant]
     Active Substance: PENTOXIFYLLINE
  11. CLONIDINE HYDROCHLORIDE [Concomitant]
     Active Substance: CLONIDINE HYDROCHLORIDE
  12. NIFEDIPINE [Concomitant]
     Active Substance: NIFEDIPINE
  13. CARVEDILOL [Concomitant]
     Active Substance: CARVEDILOL
  14. ARTIFICIAL TEARS [Concomitant]
  15. PREDNISOLONE-NEPAFENAC [Concomitant]

REACTIONS (3)
  - Vision blurred [Not Recovered/Not Resolved]
  - Wrong technique in product usage process [Unknown]
  - Underdose [Unknown]
